FAERS Safety Report 19999633 (Version 4)
Quarter: 2021Q4

REPORT INFORMATION
  Report Type: Spontaneous
  Country: US (occurrence: US)
  Receive Date: 20211027
  Receipt Date: 20211207
  Transmission Date: 20220304
  Serious: No
  Sender: FDA-Public Use
  Company Number: US-SANOFI-00818941

PATIENT
  Age: 57 Year
  Sex: Female

DRUGS (2)
  1. DUPIXENT [Suspect]
     Active Substance: DUPILUMAB
     Indication: Nasal polyps
     Dosage: 300 MG, QOW
     Route: 058
  2. DUPIXENT [Suspect]
     Active Substance: DUPILUMAB
     Indication: Asthma

REACTIONS (7)
  - Injection site extravasation [Unknown]
  - Injection site pain [Not Recovered/Not Resolved]
  - Device deployment issue [Unknown]
  - Incorrect dose administered by device [Unknown]
  - Injection site swelling [Unknown]
  - Device failure [Unknown]
  - Knee operation [Not Recovered/Not Resolved]

NARRATIVE: CASE EVENT DATE: 20211001
